FAERS Safety Report 22146467 (Version 1)
Quarter: 2023Q1

REPORT INFORMATION
  Report Type: Spontaneous
  Country: ES (occurrence: ES)
  Receive Date: 20230328
  Receipt Date: 20230328
  Transmission Date: 20230418
  Serious: Yes (Death, Congenital Anomaly)
  Sender: FDA-Public Use
  Company Number: None

PATIENT

DRUGS (4)
  1. HUMIRA [Suspect]
     Active Substance: ADALIMUMAB
     Indication: Rheumatoid arthritis
     Dosage: 1 DOSIS CADA 21 D?AS
     Route: 058
     Dates: start: 20151015, end: 20191130
  2. CARIBAN [Concomitant]
     Indication: Morning sickness
     Dosage: A DEMANDA    24 CAPSULES
     Dates: start: 20200124, end: 20200331
  3. DEXKETOPROFEN TROMETAMOL [Concomitant]
     Active Substance: DEXKETOPROFEN TROMETAMOL
     Indication: Neck pain
     Dosage: 20 TABLETS
     Dates: start: 20191123, end: 20191127
  4. FOSFOMYCIN SODIUM [Concomitant]
     Active Substance: FOSFOMYCIN SODIUM
     Indication: Urinary tract infection
     Dosage: 1 CADA 8 HORAS     12 CAPSULES

REACTIONS (4)
  - Polymicrogyria [Fatal]
  - Hemimegalencephaly [Fatal]
  - Foetal exposure during pregnancy [Fatal]
  - Brain malformation [Fatal]

NARRATIVE: CASE EVENT DATE: 20190101
